FAERS Safety Report 6175378-1 (Version None)
Quarter: 2009Q2

REPORT INFORMATION
  Report Type: 
  Country: None (occurrence: None)
  Receive Date: 20090429
  Receipt Date: 20090419
  Transmission Date: 20091009
  Serious: Yes (Hospitalization)
  Sender: FDA-Public Use
  Company Number: 232685K09USA

PATIENT
  Age: 45 Year
  Sex: Female

DRUGS (1)
  1. REBIF [Suspect]
     Indication: MULTIPLE SCLEROSIS
     Dosage: 22 MCG, 3 IN 1 WEEKS, SUBCUTANEOUS
     Route: 058
     Dates: start: 20050614

REACTIONS (7)
  - ANAEMIA [None]
  - CONDITION AGGRAVATED [None]
  - DIPLOPIA [None]
  - DIZZINESS [None]
  - FALL [None]
  - MULTIPLE SCLEROSIS [None]
  - TREATMENT NONCOMPLIANCE [None]
